FAERS Safety Report 21860511 (Version 1)
Quarter: 2023Q1

REPORT INFORMATION
  Report Type: Spontaneous
  Country: US (occurrence: US)
  Receive Date: 20230113
  Receipt Date: 20230113
  Transmission Date: 20230418
  Serious: Yes (Other)
  Sender: FDA-Public Use
  Company Number: US-ABBVIE-4269866

PATIENT
  Sex: Female
  Weight: 81.646 kg

DRUGS (5)
  1. SYNTHROID [Suspect]
     Active Substance: LEVOTHYROXINE SODIUM
     Indication: Product used for unknown indication
     Route: 048
     Dates: start: 202209
  2. METOPROLOL SUCCINATE [Concomitant]
     Active Substance: METOPROLOL SUCCINATE
     Indication: Product used for unknown indication
     Dosage: 1 AND HALF DAILY
     Dates: start: 2014
  3. LEVOXYL [Suspect]
     Active Substance: LEVOTHYROXINE SODIUM
     Indication: Product used for unknown indication
     Route: 065
  4. UNITHROID [Suspect]
     Active Substance: LEVOTHYROXINE SODIUM
     Indication: Product used for unknown indication
     Route: 048
     Dates: start: 202209
  5. ELIQUIS [Concomitant]
     Active Substance: APIXABAN
     Indication: Product used for unknown indication
     Dosage: TWICE
     Dates: start: 2021

REACTIONS (7)
  - Cardioversion [Unknown]
  - Drug ineffective [Unknown]
  - Palpitations [Not Recovered/Not Resolved]
  - Thyroidectomy [Unknown]
  - Adverse drug reaction [Unknown]
  - Malaise [Unknown]
  - Adverse drug reaction [Unknown]
